FAERS Safety Report 8590896 (Version 3)
Quarter: 2012Q4

REPORT INFORMATION
  Report Type: 
  Country: CA (occurrence: CA)
  Receive Date: 20120601
  Receipt Date: 20121101
  Transmission Date: 20130627
  Serious: Yes (Other)
  Sender: FDA-Public Use
  Company Number: CA-BAYER-2012-053819

PATIENT
  Age: 45 Year
  Sex: Female

DRUGS (10)
  1. BETASERON [Suspect]
     Indication: RELAPSING-REMITTING MULTIPLE SCLEROSIS
     Dosage: 8 miu, QOD
     Route: 058
     Dates: start: 19980801
  2. AMITRIPTYLINE [Concomitant]
  3. WELLBUTRIN [Concomitant]
  4. OXAZEPAM [Concomitant]
  5. HYDROCHLOROTHIAZIDE [Concomitant]
  6. SYNTHROID [Concomitant]
  7. TECTA [Concomitant]
  8. VITAMIN D [Concomitant]
  9. GABAPENTIN [Concomitant]
  10. ZANTAC [Concomitant]

REACTIONS (6)
  - Syncope [Not Recovered/Not Resolved]
  - Livedo reticularis [Recovering/Resolving]
  - Orthostatic hypotension [Recovering/Resolving]
  - Pain in extremity [Recovered/Resolved]
  - Sensory disturbance [Recovered/Resolved]
  - Oedema peripheral [Recovered/Resolved]
